FAERS Safety Report 17619399 (Version 2)
Quarter: 2020Q2

REPORT INFORMATION
  Report Type: Spontaneous
  Country: US (occurrence: US)
  Receive Date: 20200403
  Receipt Date: 20200615
  Transmission Date: 20200713
  Serious: No
  Sender: FDA-Public Use
  Company Number: US-GILEAD-2020-0457594

PATIENT
  Age: 63 Year
  Sex: Male

DRUGS (3)
  1. HYDROCHLOROTHIAZIDE. [Concomitant]
     Active Substance: HYDROCHLOROTHIAZIDE
  2. SOFOSBUVIR;VELPATASVIR [Suspect]
     Active Substance: SOFOSBUVIR\VELPATASVIR
     Indication: CHRONIC HEPATITIS C
     Dosage: 1 DOSAGE FORM, QD
     Route: 048
     Dates: start: 202003, end: 20200528
  3. NADOLOL. [Concomitant]
     Active Substance: NADOLOL

REACTIONS (7)
  - Dyspnoea [Unknown]
  - Weight decreased [Unknown]
  - Psychiatric symptom [Unknown]
  - Peripheral swelling [Unknown]
  - Nervousness [Unknown]
  - Coordination abnormal [Unknown]
  - Dizziness [Unknown]

NARRATIVE: CASE EVENT DATE: 202003
